FAERS Safety Report 20061812 (Version 1)
Quarter: 2021Q4

REPORT INFORMATION
  Report Type: Spontaneous
  Country: US (occurrence: US)
  Receive Date: 20211112
  Receipt Date: 20211112
  Transmission Date: 20220303
  Serious: No
  Sender: FDA-Public Use
  Company Number: US-NOVARTISTESTPH-NVSC2021US259183

PATIENT
  Age: 41 Year
  Sex: Male
  Weight: 95 kg

DRUGS (2)
  1. TOBRAMYCIN [Suspect]
     Active Substance: TOBRAMYCIN
     Indication: Cystic fibrosis
     Dosage: UNK, 4 CAPSULES TWICE A DAY EVERY OTHER MONTH
     Route: 055
     Dates: start: 2014
  2. TOBRAMYCIN [Suspect]
     Active Substance: TOBRAMYCIN
     Indication: Pseudomonas infection

REACTIONS (3)
  - Product packaging issue [Unknown]
  - Limb injury [Recovered/Resolved]
  - Injury associated with device [Recovered/Resolved]
